FAERS Safety Report 8546317-0 (Version None)
Quarter: 2012Q3

REPORT INFORMATION
  Report Type: 
  Country: None (occurrence: None)
  Receive Date: 20120727
  Receipt Date: 20111213
  Transmission Date: 20120928
  Serious: No
  Sender: FDA-Public Use
  Company Number: US-ASTRAZENECA-2011SE75757

PATIENT
  Age: 44 Year
  Sex: Female

DRUGS (6)
  1. SEROQUEL XR [Suspect]
     Indication: PANIC DISORDER
     Route: 048
  2. SEROQUEL XR [Suspect]
     Route: 048
  3. SEROQUEL XR [Suspect]
     Route: 048
  4. SEROQUEL XR [Suspect]
     Route: 048
  5. SEROQUEL XR [Suspect]
     Indication: ANXIETY
     Route: 048
  6. SEROQUEL XR [Suspect]
     Route: 048

REACTIONS (4)
  - OFF LABEL USE [None]
  - AGITATION [None]
  - RESTLESSNESS [None]
  - DRUG EFFECT DECREASED [None]
